FAERS Safety Report 10022321 (Version 1)
Quarter: 2014Q1

REPORT INFORMATION
  Report Type: Spontaneous
  Country: US (occurrence: US)
  Receive Date: 20140319
  Receipt Date: 20140319
  Transmission Date: 20141002
  Serious: No
  Sender: FDA-Public Use
  Company Number: US-ASTRAZENECA-2013SE94246

PATIENT
  Age: 19510 Day
  Sex: Female

DRUGS (4)
  1. TOPROL XL [Suspect]
     Indication: PALPITATIONS
     Route: 048
     Dates: start: 20131017, end: 20131113
  2. PULMICORT [Suspect]
     Route: 055
  3. ZOLPIDEM [Concomitant]
  4. AMITRIPTYLINE [Concomitant]

REACTIONS (4)
  - Cough [Unknown]
  - Palpitations [Recovered/Resolved]
  - Presyncope [Unknown]
  - Nausea [Unknown]
